FAERS Safety Report 6152131-6 (Version None)
Quarter: 2009Q2

REPORT INFORMATION
  Report Type: 
  Country: None (occurrence: None)
  Receive Date: 20090410
  Receipt Date: 20090404
  Transmission Date: 20091009
  Serious: Yes (Hospitalization, Other)
  Sender: FDA-Public Use
  Company Number: US-PURDUE-USA_2009_0037689

PATIENT
  Age: 16 Year
  Sex: Male

DRUGS (2)
  1. OXYCONTIN [Suspect]
     Indication: DRUG ABUSE
     Dosage: UNK MG, UNK
     Route: 048
  2. XANAX [Suspect]
     Indication: DRUG ABUSE
     Dosage: UNK MG, UNK
     Route: 048

REACTIONS (3)
  - BRADYCARDIA [None]
  - DEPRESSED LEVEL OF CONSCIOUSNESS [None]
  - DRUG ABUSE [None]
